FAERS Safety Report 25255126 (Version 5)
Quarter: 2025Q4

REPORT INFORMATION
  Report Type: Spontaneous
  Country: CA (occurrence: CA)
  Receive Date: 20250430
  Receipt Date: 20251215
  Transmission Date: 20260118
  Serious: Yes (Other)
  Sender: CELLTRION
  Company Number: CA-PFIZER INC-202500048128

PATIENT

DRUGS (13)
  1. INFLECTRA [Suspect]
     Active Substance: INFLIXIMAB-DYYB
     Indication: Psoriatic arthropathy
     Dosage: 5 MG/KG, Q 0, 2, 6 WEEKS THEN EVERY 8 WEEKS
     Route: 042
     Dates: start: 20150521, end: 20210331
  2. INFLECTRA [Suspect]
     Active Substance: INFLIXIMAB-DYYB
     Dosage: 8 MG/KG, EVERY 8 WEEKS
     Route: 042
     Dates: start: 20210526
  3. INFLECTRA [Suspect]
     Active Substance: INFLIXIMAB-DYYB
     Dosage: 760 MG, AFTER 8 WEEKS AND 2 DAYS
     Route: 042
     Dates: start: 20250226
  4. INFLECTRA [Suspect]
     Active Substance: INFLIXIMAB-DYYB
     Dosage: 744 MG, EVERY 8 WEEKS (8 MG/KG, EVERY 8 WEEKS)
     Route: 042
     Dates: start: 20250423
  5. INFLECTRA [Suspect]
     Active Substance: INFLIXIMAB-DYYB
     Dosage: 740 MG, 8 WEEKS (8 MG/KG, EVERY 8 WEEKS)
     Route: 042
     Dates: start: 20250618, end: 2025
  6. IXIFI [Suspect]
     Active Substance: INFLIXIMAB-QBTX
     Indication: Psoriatic arthropathy
     Dosage: 8 MILLIGRAM/KILOGRAM EVERY 8 WEEKS
     Route: 042
     Dates: start: 20250813
  7. IXIFI [Suspect]
     Active Substance: INFLIXIMAB-QBTX
     Dosage: UNK
     Route: 042
     Dates: start: 20251008
  8. IXIFI [Suspect]
     Active Substance: INFLIXIMAB-QBTX
     Dosage: 728 MG, AFTER 8 WEEKS AND 1 DAY
     Route: 042
     Dates: start: 20251204
  9. ATORVASTATIN [Concomitant]
     Active Substance: ATORVASTATIN
     Dosage: 1 DF, UNK DOSE
  10. ASPIRIN [Concomitant]
     Active Substance: ASPIRIN
     Dosage: 1 DF, UNK DOSE
  11. FOLIC ACID [Concomitant]
     Active Substance: FOLIC ACID
     Dosage: 1 DF, UNK DOSE
  12. RAMIPRIL [Concomitant]
     Active Substance: RAMIPRIL
     Dosage: 1 DF, UNK DOSE
  13. CETIRIZINE HYDROCHLORIDE [Concomitant]
     Active Substance: CETIRIZINE HYDROCHLORIDE
     Dosage: 1 DF, UNK DOSE

REACTIONS (9)
  - Balance disorder [Not Recovered/Not Resolved]
  - Spinal stenosis [Unknown]
  - Hypertension [Unknown]
  - Joint dislocation [Unknown]
  - Rhinorrhoea [Unknown]
  - Cough [Unknown]
  - Back pain [Not Recovered/Not Resolved]
  - Hypoaesthesia [Not Recovered/Not Resolved]
  - Nasopharyngitis [Unknown]

NARRATIVE: CASE EVENT DATE: 20250101
